FAERS Safety Report 13030212 (Version 2)
Quarter: 2017Q1

REPORT INFORMATION
  Report Type: Spontaneous
  Country: AU (occurrence: AU)
  Receive Date: 20161215
  Receipt Date: 20170117
  Transmission Date: 20170428
  Serious: No
  Sender: FDA-Public Use
  Company Number: AU-AMGEN-AUSSP2016174517

PATIENT
  Age: 82 Year
  Sex: Male

DRUGS (1)
  1. ARANESP [Suspect]
     Active Substance: DARBEPOETIN ALFA
     Indication: CHRONIC KIDNEY DISEASE
     Dosage: 40 MUG, (ONCE EVERY 5 DAYS OR SOMEDAYS HAVE TO BE 4 DAYS)
     Route: 065

REACTIONS (1)
  - Inappropriate schedule of drug administration [Unknown]
